FAERS Safety Report 5793609-4 (Version None)
Quarter: 2008Q2

REPORT INFORMATION
  Report Type: 
  Country: None (occurrence: None)
  Receive Date: 20080627
  Receipt Date: 20080617
  Transmission Date: 20081010
  Serious: Yes (Other)
  Sender: FDA-Public Use
  Company Number: US-BAYER-200812515BCC

PATIENT
  Sex: Male

DRUGS (2)
  1. 81 MG ENTERIC LOW DOSE BAYER ASPIRIN [Suspect]
     Indication: ISCHAEMIC HEART DISEASE PROPHYLAXIS
     Route: 048
  2. 325 MG GENUINE BAYER ASPIRIN [Suspect]
     Indication: ISCHAEMIC HEART DISEASE PROPHYLAXIS
     Route: 048

REACTIONS (2)
  - CARDIAC PACEMAKER INSERTION [None]
  - CORONARY ARTERIAL STENT INSERTION [None]
